FAERS Safety Report 9970080 (Version 1)
Quarter: 2014Q1

REPORT INFORMATION
  Report Type: Spontaneous
  Country: US (occurrence: US)
  Receive Date: 20140306
  Receipt Date: 20140306
  Transmission Date: 20141002
  Serious: Yes (Hospitalization)
  Sender: FDA-Public Use
  Company Number: US-TEVA-465684USA

PATIENT
  Age: 49 Year
  Sex: Female

DRUGS (2)
  1. NUVIGIL [Suspect]
  2. SUBOXONE [Concomitant]

REACTIONS (4)
  - Headache [Unknown]
  - Nausea [Unknown]
  - Vomiting [Unknown]
  - Pain [Unknown]
